FAERS Safety Report 25399692 (Version 2)
Quarter: 2025Q3

REPORT INFORMATION
  Report Type: Spontaneous
  Country: GB (occurrence: GB)
  Receive Date: 20250605
  Receipt Date: 20250729
  Transmission Date: 20251021
  Serious: Yes (Other)
  Sender: AMGEN
  Company Number: GB-PFIZER INC-PV202500065310

PATIENT
  Age: 78 Year
  Sex: Female

DRUGS (1)
  1. ENBREL [Suspect]
     Active Substance: ETANERCEPT
     Indication: Rheumatoid arthritis
     Dosage: 50 MG, WEEKLY
     Route: 058

REACTIONS (3)
  - Shoulder fracture [Unknown]
  - Fall [Unknown]
  - Malaise [Unknown]

NARRATIVE: CASE EVENT DATE: 20241201
